FAERS Safety Report 18264552 (Version 1)
Quarter: 2020Q3

REPORT INFORMATION
  Report Type: Report from Study
  Country: IE (occurrence: IE)
  Receive Date: 20200914
  Receipt Date: 20200914
  Transmission Date: 20201103
  Serious: Yes (Other)
  Sender: FDA-Public Use
  Company Number: NVSC2020IE247851

PATIENT
  Sex: Female

DRUGS (1)
  1. TYVERB [Suspect]
     Active Substance: LAPATINIB
     Indication: COLORECTAL CANCER METASTATIC
     Dosage: 1000 MG
     Route: 048
     Dates: start: 20200610, end: 20200831

REACTIONS (3)
  - Colorectal cancer metastatic [Not Recovered/Not Resolved]
  - Off label use [Recovered/Resolved]
  - Malignant neoplasm progression [Not Recovered/Not Resolved]
